FAERS Safety Report 18924122 (Version 2)
Quarter: 2021Q1

REPORT INFORMATION
  Report Type: Spontaneous
  Country: US (occurrence: US)
  Receive Date: 20210222
  Receipt Date: 20210304
  Transmission Date: 20210420
  Serious: Yes (Hospitalization)
  Sender: FDA-Public Use
  Company Number: US-ALLERGAN-2106790US

PATIENT
  Sex: Female

DRUGS (1)
  1. BOTOX COSMETIC [Suspect]
     Active Substance: ONABOTULINUMTOXINA
     Indication: SKIN WRINKLING
     Dosage: 37 UNITS, SINGLE
     Dates: start: 20210211, end: 20210211

REACTIONS (10)
  - Paraesthesia [Unknown]
  - Product preparation error [Unknown]
  - Dyspnoea [Recovering/Resolving]
  - Lagophthalmos [Unknown]
  - Limb discomfort [Unknown]
  - Gait inability [Recovered/Resolved]
  - Eyelid ptosis [Unknown]
  - Dry eye [Unknown]
  - Muscular weakness [Unknown]
  - Hypoaesthesia [Not Recovered/Not Resolved]

NARRATIVE: CASE EVENT DATE: 202102
